FAERS Safety Report 7482932-3 (Version None)
Quarter: 2011Q2

REPORT INFORMATION
  Report Type: 
  Country: None (occurrence: None)
  Receive Date: 20110516
  Receipt Date: 20110509
  Transmission Date: 20111010
  Serious: Yes (Other)
  Sender: FDA-Public Use
  Company Number: US-AMGEN-USASP2011020133

PATIENT
  Age: 56 Year
  Sex: Female
  Weight: 76.644 kg

DRUGS (14)
  1. NPLATE [Suspect]
     Indication: IDIOPATHIC THROMBOCYTOPENIC PURPURA
     Dosage: 10 A?G/KG, QWK
     Route: 058
     Dates: start: 20041024, end: 20110106
  2. CALCIUM MAGNESIUM [Concomitant]
     Dosage: UNK UNK, QD
     Route: 048
  3. IVIGLOB-EX [Concomitant]
     Dosage: 40 G, QWK
     Route: 042
  4. AMICAR [Concomitant]
     Dosage: 500 MG, PRN
  5. FILGRASTIM [Concomitant]
     Dosage: 300 A?G, UNK
  6. LEXAPRO [Concomitant]
     Dosage: 10 MG, QD
     Route: 048
  7. INTERFERON ALPHA 1-A [Concomitant]
     Dosage: 180 A?G, QWK
     Dates: start: 20100101, end: 20110301
  8. RIBAVIRIN [Concomitant]
     Dosage: 200 MG, BID
     Route: 048
  9. DARBEPOETIN ALFA [Concomitant]
     Dosage: 200 A?G, QWK
     Route: 058
  10. NEUPOGEN [Concomitant]
     Dosage: 300 A?G, QWK
     Route: 058
  11. AMOXICILLIN [Concomitant]
     Dosage: 500 MG, UNK
     Route: 048
  12. EPOETIN ALFA [Concomitant]
     Dosage: 40000 UNK, UNK
  13. ATIVAN [Concomitant]
     Dosage: 0.5 MG, BID
     Route: 048
  14. TYLENOL (CAPLET) [Concomitant]
     Dosage: 325 MG, PRN

REACTIONS (7)
  - NEUTROPENIA [None]
  - MARROW HYPERPLASIA [None]
  - HEADACHE [None]
  - ANAEMIA MACROCYTIC [None]
  - HAEMATOLOGICAL MALIGNANCY [None]
  - THROMBOCYTOPENIA [None]
  - BONE MARROW RETICULIN FIBROSIS [None]
